FAERS Safety Report 21324084 (Version 1)
Quarter: 2022Q3

REPORT INFORMATION
  Report Type: Spontaneous
  Country: US (occurrence: US)
  Receive Date: 20220912
  Receipt Date: 20220912
  Transmission Date: 20221027
  Serious: Yes (Hospitalization)
  Sender: FDA-Public Use
  Company Number: US-PFIZER INC-202201147914

PATIENT
  Age: 54 Year
  Sex: Male

DRUGS (4)
  1. LOMOTIL [Suspect]
     Active Substance: ATROPINE SULFATE\DIPHENOXYLATE HYDROCHLORIDE
     Indication: Diarrhoea
     Dosage: UNK
  2. TALAZOPARIB [Concomitant]
     Active Substance: TALAZOPARIB
     Indication: Neoplasm
     Dosage: 0.25 MILLIGRAM DAILY, 1 WEEK ON/1 WEEK OFF
     Route: 048
     Dates: start: 20220715
  3. RP-3500 [Concomitant]
     Active Substance: RP-3500
     Indication: Neoplasm
     Dosage: 80 MILLIGRAM, QD, 3 DAYS ON/4 DAYS OFF, 1 WEEK ON/1 WEEK OFF
     Route: 048
     Dates: start: 20220719
  4. NEULASTA [Concomitant]
     Active Substance: PEGFILGRASTIM
     Indication: Chills
     Dosage: UNK
     Dates: start: 20220805

REACTIONS (1)
  - Drug ineffective [Unknown]
